FAERS Safety Report 18577996 (Version 1)
Quarter: 2020Q4

REPORT INFORMATION
  Report Type: Other
  Country: US (occurrence: US)
  Receive Date: 20201204
  Receipt Date: 20201204
  Transmission Date: 20210114
  Serious: Yes (Hospitalization)
  Sender: FDA-Public Use
  Company Number: US-ROCHE-2725421

PATIENT
  Sex: Male

DRUGS (1)
  1. GAZYVA [Suspect]
     Active Substance: OBINUTUZUMAB
     Indication: B-CELL LYMPHOMA
     Dosage: 23/DEC/2019, 24/AUG/2020, 29/JUN/2020, 13/APR/2020, 17/FEB/2020, 29/OCT/2019.
     Route: 042

REACTIONS (1)
  - COVID-19 [Unknown]
